FAERS Safety Report 9977693 (Version 1)
Quarter: 2014Q1

REPORT INFORMATION
  Report Type: Report from Study
  Country: US (occurrence: US)
  Receive Date: 20140306
  Receipt Date: 20140306
  Transmission Date: 20141002
  Serious: No
  Sender: FDA-Public Use
  Company Number: US-ABBVIE-13P-163-1162886-00

PATIENT
  Age: 25 Year
  Sex: Female

DRUGS (7)
  1. HUMIRA [Suspect]
     Indication: PSORIASIS
     Dates: start: 20130905
  2. SYMBICORT [Concomitant]
     Indication: ASTHMA
     Dosage: 80/4.5
  3. ALBUTEROL [Concomitant]
     Indication: ASTHMA
  4. LOESTRIN [Concomitant]
     Indication: CONTRACEPTION
  5. NASOCORT [Concomitant]
     Indication: HYPERSENSITIVITY
     Dosage: 2 SQUIRTS IN EACH NOSTRIL
  6. CLARITIN [Concomitant]
     Indication: HYPERSENSITIVITY
  7. MIGRAINE MEDICINE [Concomitant]
     Indication: MIGRAINE

REACTIONS (1)
  - Drug dose omission [Unknown]
